FAERS Safety Report 13377269 (Version 1)
Quarter: 2017Q1

REPORT INFORMATION
  Report Type: Report from Study
  Country: US (occurrence: US)
  Receive Date: 20170328
  Receipt Date: 20170328
  Transmission Date: 20170429
  Serious: Yes (Death, Hospitalization, Other)
  Sender: FDA-Public Use
  Company Number: US-009507513-1703USA005874

PATIENT
  Age: 77 Year
  Sex: Female

DRUGS (1)
  1. NOXAFIL [Suspect]
     Active Substance: POSACONAZOLE
     Indication: PROPHYLAXIS
     Dosage: UNK
     Route: 048
     Dates: start: 201610, end: 20170308

REACTIONS (5)
  - Febrile neutropenia [Unknown]
  - Dehydration [Unknown]
  - Aplastic anaemia [Fatal]
  - Diverticulitis [Fatal]
  - Asthenia [Unknown]

NARRATIVE: CASE EVENT DATE: 20170223
